FAERS Safety Report 5044800-6 (Version None)
Quarter: 2006Q2

REPORT INFORMATION
  Report Type: 
  Country: None (occurrence: None)
  Receive Date: 20060601
  Receipt Date: 20060217
  Transmission Date: 20061013
  Serious: No
  Sender: FDA-Public Use
  Company Number: 2006-BP-00595BP(1)

PATIENT
  Age: 81 Year
  Sex: Male
  Weight: 62.7 kg

DRUGS (11)
  1. SPIRIVA [Suspect]
     Indication: CHRONIC OBSTRUCTIVE PULMONARY DISEASE
     Dosage: SEE TEXT (18 MCG,TWICE A DAY), IH
     Route: 055
     Dates: start: 20051001, end: 20051017
  2. PRAVACHOL [Concomitant]
  3. RANITIDINE [Concomitant]
  4. GLUCOPHAGE [Concomitant]
  5. THEOPHYLLINE [Concomitant]
  6. COREG [Concomitant]
  7. ADVAIR (SERETIDE /01420901/) [Concomitant]
  8. FUROSEMIDE [Concomitant]
  9. CEPTOPRIL [Concomitant]
  10. POTASSIUM CHLORIDE [Concomitant]
  11. LIPRAM (NORTASE) [Concomitant]

REACTIONS (2)
  - INCONTINENCE [None]
  - URINARY RETENTION [None]
